FAERS Safety Report 6406944-3 (Version None)
Quarter: 2009Q4

REPORT INFORMATION
  Report Type: 
  Country: None (occurrence: None)
  Receive Date: 20091020
  Receipt Date: 20091019
  Transmission Date: 20100525
  Serious: Yes (Other)
  Sender: FDA-Public Use
  Company Number: US-TEVA-207133USA

PATIENT
  Sex: Male

DRUGS (4)
  1. AMPHETAMINES [Suspect]
     Indication: ATTENTION DEFICIT/HYPERACTIVITY DISORDER
     Dosage: 25MG BID
     Route: 048
     Dates: start: 20090813, end: 20090818
  2. CLONAZEPAM [Concomitant]
     Dosage: AND PRN
     Route: 048
  3. DULOXETINE HYDROCHLORIDE [Concomitant]
     Route: 048
  4. LAMOTRIGINE [Concomitant]
     Route: 048

REACTIONS (7)
  - ABNORMAL BEHAVIOUR [None]
  - AFFECT LABILITY [None]
  - AGGRESSION [None]
  - ANGER [None]
  - IRRITABILITY [None]
  - OVERDOSE [None]
  - PHYSICAL ASSAULT [None]
